FAERS Safety Report 4505096-4 (Version None)
Quarter: 2004Q4

REPORT INFORMATION
  Report Type: 
  Country: None (occurrence: None)
  Receive Date: 20041116
  Receipt Date: 20041027
  Transmission Date: 20050328
  Serious: Yes (Life-Threatening)
  Sender: FDA-Public Use
  Company Number: DSA_25247_2004

PATIENT
  Age: 76 Year
  Sex: Female

DRUGS (9)
  1. TEMESTA [Suspect]
     Indication: NEUROSIS
     Dosage: DF PO
     Route: 048
  2. ANAFRANIL [Suspect]
     Indication: NEUROSIS
     Dosage: DF PO
     Route: 048
  3. HALDOL [Suspect]
     Indication: NEUROSIS
     Dosage: DF PO
     Route: 048
  4. LOXEN [Suspect]
     Indication: ISCHAEMIC CARDIOMYOPATHY
     Dosage: DF PO
     Route: 048
  5. RIVOTRIL [Suspect]
     Indication: NEUROSIS
     Dosage: DF PO
     Route: 048
  6. TENORMIN [Suspect]
     Indication: ISCHAEMIC CARDIOMYOPATHY
     Dosage: DF PO
     Route: 048
  7. TRIVASTAL [Concomitant]
  8. INIPOMP [Concomitant]
  9. ASPIRIN [Concomitant]

REACTIONS (3)
  - BLOOD CHOLESTEROL INCREASED [None]
  - HEPATIC STEATOSIS [None]
  - HEPATITIS CHOLESTATIC [None]
